FAERS Safety Report 4672550-4 (Version None)
Quarter: 2005Q2

REPORT INFORMATION
  Report Type: 
  Country: None (occurrence: None)
  Receive Date: 20050524
  Receipt Date: 20050511
  Transmission Date: 20051028
  Serious: Yes (Other)
  Sender: FDA-Public Use
  Company Number: HQWYE647611MAY05

PATIENT

DRUGS (2)
  1. ENBREL [Suspect]
     Indication: AMYLOIDOSIS
     Route: 058
  2. ENBREL [Suspect]
     Indication: ARTHRITIS
     Route: 058

REACTIONS (1)
  - ACUTE ENDOCARDITIS [None]
